FAERS Safety Report 8353016-7 (Version None)
Quarter: 2012Q2

REPORT INFORMATION
  Report Type: 
  Country: None (occurrence: None)
  Receive Date: 20120511
  Receipt Date: 20120503
  Transmission Date: 20120825
  Serious: Yes (Other)
  Sender: FDA-Public Use
  Company Number: US-ASTRAZENECA-2012SE27569

PATIENT
  Age: 60 Year
  Sex: Male
  Weight: 77.1 kg

DRUGS (6)
  1. FORADIL [Concomitant]
     Indication: SYMPATHOMIMETIC EFFECT
  2. PULMICORT FLEXHALER [Suspect]
     Route: 055
     Dates: start: 20120403
  3. ADVAIR DISKUS 100/50 [Concomitant]
  4. SINGULAIR [Concomitant]
     Indication: ASTHMA
  5. PULMICORT FLEXHALER [Suspect]
     Indication: ASTHMA
     Route: 055
     Dates: start: 19980101
  6. NASACORT [Concomitant]
     Indication: ALLERGIC SINUSITIS
     Dosage: 2 SPRAYS IN EACH NOS, QD

REACTIONS (4)
  - SKULL FRACTURE [None]
  - SUBDURAL HAEMATOMA [None]
  - CIRCUMSTANCE OR INFORMATION CAPABLE OF LEADING TO MEDICATION ERROR [None]
  - ASTHMA [None]
